FAERS Safety Report 21756968 (Version 1)
Quarter: 2022Q4

REPORT INFORMATION
  Report Type: Spontaneous
  Country: US (occurrence: None)
  Receive Date: 20221220
  Receipt Date: 20221220
  Transmission Date: 20230113
  Serious: No
  Sender: FDA-Public Use
  Company Number: 2022A410579

PATIENT
  Sex: Male
  Weight: 90.7 kg

DRUGS (1)
  1. SYMBICORT [Suspect]
     Active Substance: BUDESONIDE\FORMOTEROL FUMARATE DIHYDRATE
     Indication: Asthma
     Dosage: 160 MCG, VIA INHALATION, 1 PUFF 2 TIMES A DAY
     Route: 055

REACTIONS (5)
  - Respiratory disorder [Not Recovered/Not Resolved]
  - Secretion discharge [Not Recovered/Not Resolved]
  - Incorrect dose administered [Unknown]
  - Off label use [Unknown]
  - Device malfunction [Unknown]
